FAERS Safety Report 21617950 (Version 1)
Quarter: 2022Q4

REPORT INFORMATION
  Report Type: Spontaneous
  Country: GR (occurrence: GR)
  Receive Date: 20221119
  Receipt Date: 20221119
  Transmission Date: 20230113
  Serious: Yes (Hospitalization)
  Sender: FDA-Public Use
  Company Number: GR-002147023-NVSC2022GR242921

PATIENT
  Age: 74 Year
  Sex: Male

DRUGS (3)
  1. AMOXICILLIN\CLAVULANIC ACID [Interacting]
     Active Substance: AMOXICILLIN\CLAVULANIC ACID
     Indication: Antibiotic therapy
     Dosage: 3 DOSAGE FORM, ONCE A DAY(500/125 MGX 3 DAY)
     Route: 065
  2. ACENOCOUMAROL [Interacting]
     Active Substance: ACENOCOUMAROL
     Indication: Aortic valve replacement
     Dosage: UNK
     Route: 065
  3. TINZAPARIN [Concomitant]
     Active Substance: TINZAPARIN
     Indication: Product used for unknown indication
     Dosage: UNK(ONCE DAILY IN THERAPEUTIC DOSAGE)
     Route: 065

REACTIONS (3)
  - Mediastinal haematoma [Recovering/Resolving]
  - Drug interaction [Unknown]
  - Anticoagulation drug level above therapeutic [Unknown]
